FAERS Safety Report 23874926 (Version 1)
Quarter: 2024Q2

REPORT INFORMATION
  Report Type: Spontaneous
  Country: KR (occurrence: KR)
  Receive Date: 20240520
  Receipt Date: 20240520
  Transmission Date: 20240716
  Serious: Yes (Other)
  Sender: FDA-Public Use
  Company Number: KR-002147023-NVSC2024KR103641

PATIENT
  Age: 60 Year
  Sex: Male

DRUGS (3)
  1. EXELON [Suspect]
     Active Substance: RIVASTIGMINE TARTRATE
     Indication: Cognitive disorder
     Dosage: 1.5 MG, BID
     Route: 065
     Dates: start: 20220324, end: 20220331
  2. EXELON [Suspect]
     Active Substance: RIVASTIGMINE TARTRATE
     Indication: Cognitive disorder
     Dosage: UNK (5)
     Route: 065
     Dates: start: 202204
  3. RIVOTRIL [Concomitant]
     Active Substance: CLONAZEPAM
     Indication: Product used for unknown indication
     Dosage: UNK (0.5MG 0.5T TO 1.5T, NO IMPROVEMENT IN SYMPTOMS AND DECIDE TO FOLLOW UP)
     Route: 065
     Dates: start: 202212

REACTIONS (4)
  - Dementia [Unknown]
  - Dementia with Lewy bodies [Unknown]
  - Vomiting [Unknown]
  - Nausea [Unknown]
